FAERS Safety Report 4455029-4 (Version None)
Quarter: 2004Q3

REPORT INFORMATION
  Report Type: 
  Country: None (occurrence: None)
  Receive Date: 20040825
  Receipt Date: 20040524
  Transmission Date: 20050211
  Serious: No
  Sender: FDA-Public Use
  Company Number: 206742

PATIENT
  Age: 55 Year
  Sex: Female
  Weight: 53.5 kg

DRUGS (3)
  1. RAPTIVA [Suspect]
     Indication: PSORIASIS
     Dosage: 0.5 ML, SINGLE, SUBCUTANEOUS; 125 MG, 1/WEEK, SUBCUTANEOUS
     Route: 058
     Dates: start: 20040510, end: 20040510
  2. RAPTIVA [Suspect]
     Indication: PSORIASIS
     Dosage: 0.5 ML, SINGLE, SUBCUTANEOUS; 125 MG, 1/WEEK, SUBCUTANEOUS
     Route: 058
     Dates: start: 20040524
  3. NEOCALGUCON (CALCIUM GLUBIONATE) [Concomitant]

REACTIONS (1)
  - SINUSITIS [None]
